FAERS Safety Report 16061862 (Version 1)
Quarter: 2019Q1

REPORT INFORMATION
  Report Type: Spontaneous
  Country: GB (occurrence: GB)
  Receive Date: 20190312
  Receipt Date: 20190312
  Transmission Date: 20190418
  Serious: Yes (Other)
  Sender: FDA-Public Use
  Company Number: GB-AUROBINDO-AUR-APL-2019-012275

PATIENT

DRUGS (2)
  1. ACTIFED (PSEUDOEPHEDRINE HYDROCHLORIDE\TRIPROLIDINE HYDROCHLORIDE) [Suspect]
     Active Substance: PSEUDOEPHEDRINE HYDROCHLORIDE\TRIPROLIDINE HYDROCHLORIDE
     Indication: COUGH
     Dosage: UNK, 10ML AND 5ML
     Route: 048
     Dates: start: 20190211, end: 20190211
  2. CITALOPRAM [Suspect]
     Active Substance: CITALOPRAM HYDROBROMIDE
     Indication: PRODUCT USED FOR UNKNOWN INDICATION
     Dosage: UNK
     Route: 065

REACTIONS (6)
  - Cognitive disorder [Recovered/Resolved with Sequelae]
  - Malaise [Unknown]
  - Drug interaction [Unknown]
  - Somnolence [Recovered/Resolved with Sequelae]
  - Dizziness [Recovered/Resolved with Sequelae]
  - Vertigo [Recovered/Resolved with Sequelae]

NARRATIVE: CASE EVENT DATE: 20190211
